FAERS Safety Report 5460930-9 (Version None)
Quarter: 2007Q3

REPORT INFORMATION
  Report Type: 
  Country: None (occurrence: None)
  Receive Date: 20070810
  Receipt Date: 20070322
  Transmission Date: 20080115
  Serious: Yes (Other)
  Sender: FDA-Public Use
  Company Number: 200710263BWH

PATIENT
  Age: 19 Year
  Sex: Male

DRUGS (2)
  1. TRASYLOL [Suspect]
     Indication: HEART TRANSPLANT
     Dosage: 10 ML, ONCE, INTRAVENOUS, 50 ML, ONCE INTRAVENOUS
     Route: 042
     Dates: start: 20061126
  2. TRASYLOL [Suspect]
     Indication: HEART TRANSPLANT
     Dosage: 10 ML, ONCE, INTRAVENOUS, 50 ML, ONCE INTRAVENOUS
     Route: 042
     Dates: start: 20061126

REACTIONS (3)
  - ANAPHYLACTIC REACTION [None]
  - HYPOTENSION [None]
  - TACHYCARDIA [None]
